FAERS Safety Report 7103289-3 (Version None)
Quarter: 2010Q4

REPORT INFORMATION
  Report Type: 
  Country: None (occurrence: None)
  Receive Date: 20101115
  Receipt Date: 20101108
  Transmission Date: 20110411
  Serious: Yes (Hospitalization)
  Sender: FDA-Public Use
  Company Number: DE-GENENTECH-307069

PATIENT
  Sex: Female
  Weight: 59 kg

DRUGS (8)
  1. RITUXIMAB [Suspect]
     Indication: DIFFUSE LARGE B-CELL LYMPHOMA
     Route: 042
     Dates: start: 20100824
  2. RITUXIMAB [Suspect]
     Route: 042
  3. BENDAMUSTINE [Suspect]
     Indication: DIFFUSE LARGE B-CELL LYMPHOMA
     Dosage: 36 MG, UNK
     Route: 042
     Dates: start: 20100824
  4. BENDAMUSTINE [Suspect]
     Route: 042
  5. DEXAMETASONE [Concomitant]
     Indication: DIFFUSE LARGE B-CELL LYMPHOMA
     Dosage: 8 MG, UNK
     Route: 042
     Dates: start: 20100824
  6. PARACETAMOL [Concomitant]
     Indication: DIFFUSE LARGE B-CELL LYMPHOMA
     Dosage: 500 MG, UNK
     Route: 048
     Dates: start: 20100824
  7. RANITIDINE [Concomitant]
     Indication: DIFFUSE LARGE B-CELL LYMPHOMA
     Dosage: UNK
     Route: 042
     Dates: start: 20100824
  8. PREDNISOLONE [Concomitant]
     Indication: DIFFUSE LARGE B-CELL LYMPHOMA
     Dosage: 10 MG, UNK
     Route: 048
     Dates: start: 20100824

REACTIONS (1)
  - COLITIS [None]
